FAERS Safety Report 8364446-1 (Version None)
Quarter: 2012Q2

REPORT INFORMATION
  Report Type: 
  Country: None (occurrence: None)
  Receive Date: 20120514
  Receipt Date: 20120426
  Transmission Date: 20120825
  Serious: Yes (Hospitalization, Other)
  Sender: FDA-Public Use
  Company Number: JPI-P-020845

PATIENT
  Age: 66 Year
  Sex: Male

DRUGS (5)
  1. ASPIRIN [Suspect]
     Indication: PRODUCT USED FOR UNKNOWN INDICATION
     Dosage: 81 MG
     Dates: start: 20100101
  2. MULTIPLE UNSPECIFIED MEDICATIONS [Concomitant]
  3. CLOPIDOGREL BISULFATE [Concomitant]
  4. XYREM [Suspect]
     Indication: CATAPLEXY
     Dosage: ORAL, 9 GM (4.5 GM, 2 IN 1 D), ORAL
     Route: 048
     Dates: start: 20030721
  5. ENOXAPARIN SODIUM [Suspect]
     Indication: PRODUCT USED FOR UNKNOWN INDICATION
     Dosage: SUBCUTANEOUS
     Route: 058
     Dates: start: 20120301, end: 20120301

REACTIONS (2)
  - COAGULOPATHY [None]
  - VENOUS INSUFFICIENCY [None]
